FAERS Safety Report 10388957 (Version 1)
Quarter: 2014Q1

REPORT INFORMATION
  Report Type: Spontaneous
  Country: US (occurrence: None)
  Receive Date: 20140306
  Receipt Date: 20140306
  Transmission Date: 20141002
  Serious: Yes (Other)
  Sender: FDA-Public Use
  Company Number: 163-21880-13115414

PATIENT
  Age: 48 Year
  Sex: Male
  Weight: 140.62 kg

DRUGS (1)
  1. REVLIMID [Suspect]
     Indication: PLASMA CELL MYELOMA
     Route: 048
     Dates: start: 20130815

REACTIONS (4)
  - Drug hypersensitivity [None]
  - Rash pruritic [None]
  - Rash erythematous [None]
  - Skin haemorrhage [None]
